FAERS Safety Report 10110177 (Version 1)
Quarter: 2014Q2

REPORT INFORMATION
  Report Type: Report from Study
  Country: US (occurrence: None)
  Receive Date: 20140423
  Receipt Date: 20140423
  Transmission Date: 20141212
  Serious: Yes (Other)
  Sender: FDA-Public Use
  Company Number: 2014UCU075000142

PATIENT
  Age: 61 Year
  Sex: Female
  Weight: 89 kg

DRUGS (14)
  1. IFOSFAMIDE [Suspect]
     Indication: RHABDOMYOSARCOMA
     Dosage: 1600 MG/M2; UNK; IV
     Route: 042
     Dates: start: 201311
  2. PACLITAXEL [Suspect]
     Indication: RHABDOMYOSARCOMA
  3. CALTRATE + VITAMIN D [Concomitant]
  4. BENADRYL [Concomitant]
  5. DEXAMETHASONE [Concomitant]
  6. KYTRIL [Concomitant]
  7. LORAZEPAM [Concomitant]
  8. MESNA [Concomitant]
  9. NEULASTA [Concomitant]
  10. ONE A DAY [Concomitant]
  11. BUDESONIDE [Concomitant]
  12. AZATHIOPRINE [Concomitant]
  13. MULTIVITAMINS [Concomitant]
  14. NO STUDY MEDICATION [Suspect]
     Indication: CROHN^S DISEASE

REACTIONS (1)
  - Anaemia [None]
